FAERS Safety Report 9441001 (Version 1)
Quarter: 2013Q3

REPORT INFORMATION
  Report Type: Spontaneous
  Country: JP (occurrence: JP)
  Receive Date: 20130805
  Receipt Date: 20130805
  Transmission Date: 20140515
  Serious: Yes (Other)
  Sender: FDA-Public Use
  Company Number: PHHY2013JP079147

PATIENT
  Age: 30 Year
  Sex: Male

DRUGS (1)
  1. ARTEMETHER + BENFLUMETOL [Suspect]
     Indication: PLASMODIUM FALCIPARUM INFECTION

REACTIONS (1)
  - Liver injury [Recovered/Resolved]
